FAERS Safety Report 4392364-2 (Version None)
Quarter: 2004Q3

REPORT INFORMATION
  Report Type: 
  Country: None (occurrence: None)
  Receive Date: 20040702
  Receipt Date: 20040617
  Transmission Date: 20050211
  Serious: Yes (Other)
  Sender: FDA-Public Use
  Company Number: 2004206600US

PATIENT
  Age: 16 Year
  Sex: Male
  Weight: 46.4 kg

DRUGS (1)
  1. GENOTROPIN [Suspect]
     Indication: GROWTH HORMONE DEFICIENCY
     Dosage: 2.4 MG, QD, SUBCUTANEOUS
     Route: 058
     Dates: start: 20031230

REACTIONS (1)
  - AGRANULOCYTOSIS [None]
